FAERS Safety Report 21311494 (Version 11)
Quarter: 2024Q1

REPORT INFORMATION
  Report Type: Spontaneous
  Country: US (occurrence: US)
  Receive Date: 20220909
  Receipt Date: 20240211
  Transmission Date: 20240409
  Serious: Yes (Hospitalization, Other)
  Sender: FDA-Public Use
  Company Number: US-BRISTOL-MYERS SQUIBB COMPANY-2022-100414

PATIENT
  Age: 67 Year
  Sex: Female

DRUGS (4)
  1. REVLIMID [Suspect]
     Active Substance: LENALIDOMIDE
     Indication: Plasma cell myeloma
     Dosage: FREQUENCY: DAILY
     Route: 048
     Dates: start: 20220420
  2. REVLIMID [Suspect]
     Active Substance: LENALIDOMIDE
     Dosage: FREQUENCY: OTHER
     Route: 048
     Dates: start: 202208
  3. REVLIMID [Suspect]
     Active Substance: LENALIDOMIDE
     Dosage: DAILY FOR 21 DAYS ON 7 DAYS OFF
     Route: 048
  4. DEXAMETHASONE [Suspect]
     Active Substance: DEXAMETHASONE
     Indication: Product used for unknown indication

REACTIONS (20)
  - Dry skin [Unknown]
  - Renal disorder [Unknown]
  - Fatigue [Unknown]
  - Neutrophil count decreased [Unknown]
  - Platelet count decreased [Unknown]
  - Contusion [Unknown]
  - Liver disorder [Unknown]
  - Diarrhoea [Unknown]
  - Rash [Unknown]
  - Nausea [Not Recovered/Not Resolved]
  - Liver injury [Unknown]
  - Haematological infection [Unknown]
  - Clostridium difficile infection [Not Recovered/Not Resolved]
  - White blood cell count decreased [Unknown]
  - Product dose omission issue [Unknown]
  - Back pain [Unknown]
  - Decreased appetite [Unknown]
  - Alopecia [Unknown]
  - Red blood cell count decreased [Unknown]
  - Dyspnoea [Unknown]

NARRATIVE: CASE EVENT DATE: 20220701
